FAERS Safety Report 5094674-2 (Version None)
Quarter: 2006Q3

REPORT INFORMATION
  Report Type: 
  Country: None (occurrence: None)
  Receive Date: 20060731
  Receipt Date: 20060420
  Transmission Date: 20061208
  Serious: No
  Sender: FDA-Public Use
  Company Number: 2006PV012444

PATIENT
  Age: 52 Year
  Sex: Female
  Weight: 118.8424 kg

DRUGS (10)
  1. BYETTA [Suspect]
     Indication: DIABETES MELLITUS NON-INSULIN-DEPENDENT
     Dosage: SEE IMAGE
     Route: 058
     Dates: start: 20060218, end: 20060331
  2. BYETTA [Suspect]
     Indication: DIABETES MELLITUS NON-INSULIN-DEPENDENT
     Dosage: SEE IMAGE
     Route: 058
     Dates: start: 20060401
  3. HUMULIN 70/30 [Concomitant]
  4. AMARYL [Concomitant]
  5. HUMULIN 70/30 [Concomitant]
  6. GLUCOTROL XL [Concomitant]
  7. PEPCID [Concomitant]
  8. COZAAR [Concomitant]
  9. DILTIAZEM HCL [Concomitant]
  10. MOBIC [Concomitant]

REACTIONS (4)
  - DYSPEPSIA [None]
  - HEADACHE [None]
  - NAUSEA [None]
  - WEIGHT DECREASED [None]
